FAERS Safety Report 4814636-7 (Version None)
Quarter: 2005Q4

REPORT INFORMATION
  Report Type: 
  Country: None (occurrence: None)
  Receive Date: 20051028
  Receipt Date: 20051018
  Transmission Date: 20060501
  Serious: Yes (Hospitalization)
  Sender: FDA-Public Use
  Company Number: 420103

PATIENT
  Age: 79 Year
  Sex: Female

DRUGS (5)
  1. CARVEDILOL [Suspect]
     Indication: MYOCARDIAL INFARCTION
     Dosage: 2.5MG TWICE PER DAY
     Route: 048
     Dates: start: 20041220, end: 20050712
  2. NORVASC [Concomitant]
     Dates: start: 20041216, end: 20050712
  3. ISOSORBIDE MONONITRATE [Concomitant]
     Dates: start: 20041216, end: 20050712
  4. LASIX [Concomitant]
     Dates: start: 20041216, end: 20050712
  5. NITRODERM [Concomitant]
     Dates: start: 20041216, end: 20050712

REACTIONS (1)
  - CARDIAC FAILURE [None]
